FAERS Safety Report 5710073-1 (Version None)
Quarter: 2008Q2

REPORT INFORMATION
  Report Type: 
  Country: None (occurrence: None)
  Receive Date: 20080418
  Receipt Date: 20070820
  Transmission Date: 20081010
  Serious: No
  Sender: FDA-Public Use
  Company Number: US-ASTRAZENECA-2007UW19998

PATIENT
  Age: 60 Year
  Sex: Male
  Weight: 81.6 kg

DRUGS (3)
  1. TOPROL-XL [Suspect]
     Indication: HYPERTENSION
     Dosage: 2 - 3 TIMES PER DAY
     Route: 048
  2. CLONIDINE HCL [Concomitant]
  3. AVALIDE [Concomitant]

REACTIONS (2)
  - JOINT SWELLING [None]
  - OEDEMA PERIPHERAL [None]
